FAERS Safety Report 25445912 (Version 1)
Quarter: 2025Q2

REPORT INFORMATION
  Report Type: Report from Study
  Country: IT (occurrence: IT)
  Receive Date: 20250617
  Receipt Date: 20250617
  Transmission Date: 20250716
  Serious: Yes (Other)
  Sender: Norvium Bioscience
  Company Number: IT-Norvium Bioscience LLC-080271

PATIENT
  Age: 8 Month
  Sex: Male

DRUGS (2)
  1. GEMCITABINE [Suspect]
     Active Substance: GEMCITABINE
     Indication: Glioma
     Dosage: AS 100 MIN INFUSION
  2. OXALIPLATIN [Suspect]
     Active Substance: OXALIPLATIN
     Indication: Glioma
     Dosage: AS A 2H INFUSION

REACTIONS (2)
  - Seizure [Unknown]
  - Haematotoxicity [Unknown]
